FAERS Safety Report 6203662-1 (Version None)
Quarter: 2009Q2

REPORT INFORMATION
  Report Type: 
  Country: None (occurrence: None)
  Receive Date: 20090527
  Receipt Date: 20090521
  Transmission Date: 20091009
  Serious: Yes (Hospitalization, Other)
  Sender: FDA-Public Use
  Company Number: JP-AVENTIS-200911423JP

PATIENT
  Age: 62 Year
  Sex: Male
  Weight: 57.5 kg

DRUGS (5)
  1. TAXOTERE [Suspect]
     Route: 041
     Dates: start: 20090430, end: 20090430
  2. PREDNISOLONE [Concomitant]
     Route: 048
     Dates: start: 20090430, end: 20090520
  3. ESTRACYT                           /00327002/ [Concomitant]
     Dosage: DOSE: 4 CAPSULES
     Route: 048
     Dates: start: 20081201, end: 20090305
  4. ZOMETA [Concomitant]
     Route: 042
     Dates: start: 20090413
  5. NEUTROGIN [Concomitant]
     Route: 058
     Dates: start: 20090511, end: 20090512

REACTIONS (2)
  - HYPONATRAEMIA [None]
  - INAPPROPRIATE ANTIDIURETIC HORMONE SECRETION [None]
